FAERS Safety Report 9457709 (Version 1)
Quarter: 2013Q3

REPORT INFORMATION
  Report Type: Spontaneous
  Country: NL (occurrence: None)
  Receive Date: 20130812
  Receipt Date: 20130812
  Transmission Date: 20140515
  Serious: Yes (Hospitalization)
  Sender: FDA-Public Use
  Company Number: AG-2012-0942

PATIENT
  Age: 64 Year
  Sex: Male
  Weight: 77 kg

DRUGS (2)
  1. CHLORAMBUCIL [Suspect]
     Indication: CHRONIC LYMPHOCYTIC LEUKAEMIA
     Dosage: DAYS 1-7 EVERY 28 DAYS (10 MG/M2, UNKNOWN), ORAL
     Route: 048
     Dates: start: 20110224, end: 20110616
  2. PARACETAMOL (PARACETAMOL) [Concomitant]

REACTIONS (1)
  - Pneumonia moraxella [None]
